FAERS Safety Report 11568904 (Version 5)
Quarter: 2017Q2

REPORT INFORMATION
  Report Type: Report from Study
  Country: BR (occurrence: BR)
  Receive Date: 20150929
  Receipt Date: 20170612
  Transmission Date: 20170829
  Serious: Yes (Other)
  Sender: FDA-Public Use
  Company Number: BR-ROCHE-1613177

PATIENT
  Sex: Female
  Weight: 71 kg

DRUGS (9)
  1. MABTHERA [Suspect]
     Active Substance: RITUXIMAB
     Indication: RHEUMATOID ARTHRITIS
     Dosage: MOST RECENT INFUSION OF RITUXIMAB: 21/APR/2016.
     Route: 042
     Dates: start: 20150126, end: 20160421
  2. AZULFIDINE [Concomitant]
     Active Substance: SULFASALAZINE
     Indication: IMMUNOSUPPRESSION
     Dosage: DAILY
     Route: 065
  3. METICORTEN [Concomitant]
     Active Substance: PREDNISONE
     Route: 065
  4. HIGROTON [Concomitant]
     Active Substance: CHLORTHALIDONE
     Indication: HYPERTENSION
     Route: 065
  5. ENDOFOLIN [Concomitant]
     Active Substance: FOLIC ACID
     Route: 065
  6. XELJANZ [Concomitant]
     Active Substance: TOFACITINIB CITRATE
  7. LOSARTAN. [Concomitant]
     Active Substance: LOSARTAN
     Indication: HYPERTENSION
     Route: 065
  8. ARAVA [Concomitant]
     Active Substance: LEFLUNOMIDE
     Indication: IMMUNOSUPPRESSION
     Route: 065
  9. OSCAL D [Concomitant]
     Active Substance: CALCIUM CARBONATE\CHOLECALCIFEROL

REACTIONS (12)
  - Osteomyelitis [Not Recovered/Not Resolved]
  - Pain [Not Recovered/Not Resolved]
  - Infection [Recovering/Resolving]
  - Arthritis infective [Not Recovered/Not Resolved]
  - Secretion discharge [Unknown]
  - Arthralgia [Not Recovered/Not Resolved]
  - Skin infection [Not Recovered/Not Resolved]
  - Osteonecrosis [Not Recovered/Not Resolved]
  - Arthropathy [Unknown]
  - Vein disorder [Not Recovered/Not Resolved]
  - Implant site necrosis [Not Recovered/Not Resolved]
  - Suture rupture [Unknown]
